FAERS Safety Report 5880675-0 (Version None)
Quarter: 2008Q3

REPORT INFORMATION
  Report Type: 
  Country: None (occurrence: None)
  Receive Date: 20080911
  Receipt Date: 20080828
  Transmission Date: 20090109
  Serious: Yes (Other)
  Sender: FDA-Public Use
  Company Number: 2008002150

PATIENT
  Age: 75 Year
  Sex: Female

DRUGS (3)
  1. TARCEVA [Suspect]
     Indication: PANCREATIC CARCINOMA METASTATIC
     Dosage: (150 MG,QD), ORAL
     Route: 048
     Dates: start: 20080809
  2. GEMCITABINE [Suspect]
  3. PROCHLORPERAZINE [Concomitant]

REACTIONS (1)
  - DEAFNESS [None]
